FAERS Safety Report 25649135 (Version 1)
Quarter: 2025Q3

REPORT INFORMATION
  Report Type: Report from Study
  Country: PE (occurrence: PE)
  Receive Date: 20250806
  Receipt Date: 20250806
  Transmission Date: 20251021
  Serious: Yes (Hospitalization)
  Sender: NOVARTIS
  Company Number: PE-002147023-NVSC2025PE034287

PATIENT
  Age: 48 Year
  Sex: Female

DRUGS (1)
  1. KISQALI [Suspect]
     Active Substance: RIBOCICLIB SUCCINATE
     Indication: Breast cancer metastatic
     Dosage: 600 MG, QD
     Route: 048
     Dates: start: 20231101, end: 202502

REACTIONS (4)
  - Drug resistance [Recovered/Resolved with Sequelae]
  - Thrombosis [Not Recovered/Not Resolved]
  - Lymphoedema [Recovered/Resolved with Sequelae]
  - Nausea [Unknown]

NARRATIVE: CASE EVENT DATE: 20250201
